FAERS Safety Report 13689794 (Version 1)
Quarter: 2017Q2

REPORT INFORMATION
  Report Type: Spontaneous
  Country: DE (occurrence: DE)
  Receive Date: 20170626
  Receipt Date: 20170626
  Transmission Date: 20170830
  Serious: Yes (Life-Threatening, Hospitalization)
  Sender: FDA-Public Use
  Company Number: DE-UCBSA-2017023126

PATIENT
  Sex: Female
  Weight: 49 kg

DRUGS (5)
  1. RISPERIDON [Concomitant]
     Active Substance: RISPERIDONE
     Indication: CONFUSIONAL STATE
  2. SEROQUEL [Concomitant]
     Active Substance: QUETIAPINE FUMARATE
     Indication: RESTLESSNESS
     Dosage: 25 MG TABLET (3 X 1 TABLET)
     Route: 048
     Dates: start: 20170611
  3. NEUPRO [Suspect]
     Active Substance: ROTIGOTINE
     Indication: RESTLESS LEGS SYNDROME
     Dosage: 4 MG, ONCE DAILY (QD)
     Route: 062
     Dates: start: 2015, end: 20170613
  4. RISPERIDON [Concomitant]
     Active Substance: RISPERIDONE
     Indication: RESTLESSNESS
     Dosage: 1 MG TABLET Z X HALF TABLET
     Route: 048
     Dates: start: 20170606, end: 20170615
  5. SEROQUEL [Concomitant]
     Active Substance: QUETIAPINE FUMARATE
     Indication: CONFUSIONAL STATE

REACTIONS (6)
  - Akathisia [Recovered/Resolved]
  - Fall [Recovered/Resolved]
  - Prescribed overdose [Unknown]
  - Dizziness [Unknown]
  - Off label use [Unknown]
  - Confusional state [Recovered/Resolved]

NARRATIVE: CASE EVENT DATE: 2015
